FAERS Safety Report 7471216-5 (Version None)
Quarter: 2011Q2

REPORT INFORMATION
  Report Type: 
  Country: None (occurrence: None)
  Receive Date: 20110510
  Receipt Date: 20110506
  Transmission Date: 20111010
  Serious: Yes (Death, Other)
  Sender: FDA-Public Use
  Company Number: IE-PFIZER INC-2011080048

PATIENT
  Age: 53 Year
  Sex: Male

DRUGS (2)
  1. SERTRALINE HYDROCHLORIDE [Suspect]
     Indication: DEPRESSION
  2. XANAX [Suspect]
     Indication: ANXIETY

REACTIONS (6)
  - SCREAMING [None]
  - COMPLETED SUICIDE [None]
  - PSYCHOTIC DISORDER [None]
  - PERSONALITY CHANGE [None]
  - NIGHTMARE [None]
  - PSYCHOMOTOR HYPERACTIVITY [None]
